FAERS Safety Report 7642701-8 (Version None)
Quarter: 2011Q3

REPORT INFORMATION
  Report Type: 
  Country: None (occurrence: None)
  Receive Date: 20110728
  Receipt Date: 20110725
  Transmission Date: 20111222
  Serious: No
  Sender: FDA-Public Use
  Company Number: US-PFIZER INC-2011169213

PATIENT
  Sex: Female
  Weight: 69.388 kg

DRUGS (3)
  1. SERTRALINE HYDROCHLORIDE [Suspect]
     Dosage: 25 MG, 1X/DAY
     Route: 048
     Dates: start: 20110719
  2. SERTRALINE HYDROCHLORIDE [Suspect]
     Indication: ANXIETY
     Dosage: UNK
     Route: 048
     Dates: start: 20040101, end: 20040101
  3. AMITRIPTYLINE [Concomitant]
     Dosage: UNK

REACTIONS (4)
  - SLEEP DISORDER [None]
  - AGITATION [None]
  - ANXIETY [None]
  - INSOMNIA [None]
